FAERS Safety Report 8772127 (Version 2)
Quarter: 2012Q4

REPORT INFORMATION
  Report Type: 
  Country: US (occurrence: US)
  Receive Date: 20120906
  Receipt Date: 20121008
  Transmission Date: 20130627
  Serious: No
  Sender: FDA-Public Use
  Company Number: US-009507513-1208USA008624

PATIENT
  Age: 57 Year
  Sex: Female
  Weight: 72.56 kg

DRUGS (5)
  1. TICE BCG LIVE [Suspect]
     Indication: BLADDER CANCER
     Dosage: liquid, 60 CC
     Route: 043
     Dates: start: 20120608, end: 20120608
  2. TICE BCG LIVE [Suspect]
     Dosage: liquid, 60 CC
     Route: 043
     Dates: start: 20120801, end: 20120801
  3. SYNTHROID [Concomitant]
  4. PROZAC [Concomitant]
  5. TRICOR (FENOFIBRATE) [Concomitant]

REACTIONS (10)
  - Trigger finger [Not Recovered/Not Resolved]
  - Pain in extremity [Not Recovered/Not Resolved]
  - Feeling hot [Not Recovered/Not Resolved]
  - Trigger finger [Recovered/Resolved with Sequelae]
  - Musculoskeletal discomfort [Not Recovered/Not Resolved]
  - Catheter site pain [Recovered/Resolved]
  - Fatigue [Not Recovered/Not Resolved]
  - Influenza like illness [Not Recovered/Not Resolved]
  - Pyrexia [Not Recovered/Not Resolved]
  - Arthralgia [Not Recovered/Not Resolved]
